FAERS Safety Report 5506810-1 (Version None)
Quarter: 2007Q4

REPORT INFORMATION
  Report Type: 
  Country: None (occurrence: None)
  Receive Date: 20071105
  Receipt Date: 20071023
  Transmission Date: 20080405
  Serious: Yes (Hospitalization)
  Sender: FDA-Public Use
  Company Number: US-SHR-US-2007-040411

PATIENT
  Sex: Male

DRUGS (1)
  1. CAMPATH [Suspect]
     Dosage: 30 MG/1XWK VARIED
     Route: 058
     Dates: start: 20050101, end: 20071010

REACTIONS (3)
  - ARTHRALGIA [None]
  - EPISTAXIS [None]
  - JOINT SWELLING [None]
